FAERS Safety Report 9146282 (Version 1)
Quarter: 2013Q1

REPORT INFORMATION
  Report Type: Report from Study
  Country: VE (occurrence: VE)
  Receive Date: 20130307
  Receipt Date: 20130307
  Transmission Date: 20140127
  Serious: Yes (Other)
  Sender: FDA-Public Use
  Company Number: VE-ABBOTT-13P-178-1057882-00

PATIENT
  Sex: Male
  Weight: 74 kg

DRUGS (2)
  1. HUMIRA [Suspect]
     Indication: ANKYLOSING SPONDYLITIS
     Route: 058
     Dates: start: 20111213, end: 201212
  2. ARTRODAR [Concomitant]
     Indication: PRODUCT USED FOR UNKNOWN INDICATION
     Dosage: VO

REACTIONS (4)
  - Bronchiectasis [Recovering/Resolving]
  - Paraesthesia [Not Recovered/Not Resolved]
  - Respiratory distress [Recovering/Resolving]
  - Vertigo [Recovering/Resolving]
